FAERS Safety Report 21315950 (Version 1)
Quarter: 2022Q3

REPORT INFORMATION
  Report Type: Spontaneous
  Country: US (occurrence: US)
  Receive Date: 20220910
  Receipt Date: 20220910
  Transmission Date: 20221027
  Serious: Yes (Life-Threatening, Hospitalization, Other)
  Sender: FDA-Public Use
  Company Number: US-drreddys-LIT/USA/22/0154237

PATIENT
  Age: 86 Year
  Sex: Female

DRUGS (12)
  1. CINACALCET HYDROCHLORIDE [Suspect]
     Active Substance: CINACALCET HYDROCHLORIDE
     Indication: Hypercalcaemia
  2. CINACALCET HYDROCHLORIDE [Suspect]
     Active Substance: CINACALCET HYDROCHLORIDE
     Indication: Parathyroid tumour benign
  3. IBANDRONATE SODIUM [Suspect]
     Active Substance: IBANDRONATE SODIUM
     Indication: Hypercalcaemia
  4. IBANDRONATE SODIUM [Suspect]
     Active Substance: IBANDRONATE SODIUM
     Indication: Parathyroid tumour benign
  5. PAMIDRONATE DISODIUM [Suspect]
     Active Substance: PAMIDRONATE DISODIUM
     Indication: Hypercalcaemia
  6. PAMIDRONATE DISODIUM [Suspect]
     Active Substance: PAMIDRONATE DISODIUM
     Indication: Parathyroid tumour benign
  7. SALINE [Suspect]
     Active Substance: SODIUM CHLORIDE
     Indication: Hypercalcaemia
     Route: 042
  8. SALINE [Suspect]
     Active Substance: SODIUM CHLORIDE
     Indication: Parathyroid tumour benign
  9. FUROSEMIDE [Suspect]
     Active Substance: FUROSEMIDE
     Indication: Hypercalcaemia
  10. FUROSEMIDE [Suspect]
     Active Substance: FUROSEMIDE
     Indication: Parathyroid tumour benign
  11. CALCITONIN [Suspect]
     Active Substance: CALCITONIN
     Indication: Hypercalcaemia
  12. CALCITONIN [Suspect]
     Active Substance: CALCITONIN
     Indication: Parathyroid tumour benign

REACTIONS (3)
  - Drug ineffective [Unknown]
  - Blood calcium increased [Recovering/Resolving]
  - Acute kidney injury [Recovered/Resolved]
